FAERS Safety Report 5668566-1 (Version None)
Quarter: 2008Q1

REPORT INFORMATION
  Report Type: 
  Country: None (occurrence: None)
  Receive Date: 20080315
  Receipt Date: 20080227
  Transmission Date: 20080703
  Serious: No
  Sender: FDA-Public Use
  Company Number: US-ABBOTT-08P-163-0440525-00

PATIENT
  Sex: Female
  Weight: 94.886 kg

DRUGS (4)
  1. HUMIRA [Suspect]
     Indication: PSORIATIC ARTHROPATHY
     Route: 058
     Dates: start: 20080210, end: 20080217
  2. PAIN PILLS [Concomitant]
     Indication: PSORIATIC ARTHROPATHY
     Route: 048
  3. PAIN PILLS [Concomitant]
     Indication: PAIN
  4. DIABETIC MEDICATION [Concomitant]
     Indication: DIABETES MELLITUS

REACTIONS (7)
  - BRONCHITIS [None]
  - COUGH [None]
  - FEELING ABNORMAL [None]
  - HYPERHIDROSIS [None]
  - INCREASED UPPER AIRWAY SECRETION [None]
  - NASOPHARYNGITIS [None]
  - SINUS CONGESTION [None]
